FAERS Safety Report 9088377 (Version 1)
Quarter: 2013Q1

REPORT INFORMATION
  Report Type: Spontaneous
  Country: US (occurrence: US)
  Receive Date: 20130218
  Receipt Date: 20130218
  Transmission Date: 20140127
  Serious: No
  Sender: FDA-Public Use
  Company Number: US-ABBOTT-12P-163-1023288-00

PATIENT
  Age: 76 Year
  Sex: Female
  Weight: 76.73 kg

DRUGS (5)
  1. SIMCOR 500/40 [Suspect]
     Indication: BLOOD CHOLESTEROL INCREASED
     Dosage: 500MG/40MG
     Dates: start: 20121209
  2. BYSTOLIC [Concomitant]
     Indication: HYPERTENSION
  3. LOVAZA [Concomitant]
     Indication: BLOOD CHOLESTEROL INCREASED
  4. DOXAZOSIN [Concomitant]
     Indication: HYPERTENSION
  5. DIOVAN [Concomitant]
     Indication: HYPERTENSION

REACTIONS (4)
  - Headache [Not Recovered/Not Resolved]
  - Chest discomfort [Not Recovered/Not Resolved]
  - Fatigue [Not Recovered/Not Resolved]
  - Dizziness [Not Recovered/Not Resolved]
